FAERS Safety Report 5148706-3 (Version None)
Quarter: 2006Q4

REPORT INFORMATION
  Report Type: 
  Country: None (occurrence: None)
  Receive Date: 20061111
  Receipt Date: 20060930
  Transmission Date: 20070319
  Serious: Yes (Hospitalization)
  Sender: FDA-Public Use
  Company Number: DE-ABBOTT-06P-062-0345464-00

PATIENT
  Sex: Male
  Weight: 71 kg

DRUGS (2)
  1. ZEMPLAR [Suspect]
     Indication: HYPERPARATHYROIDISM SECONDARY
     Route: 042
     Dates: start: 20060627
  2. ZEMPLAR [Suspect]
     Route: 042
     Dates: start: 20060627

REACTIONS (1)
  - REHABILITATION THERAPY [None]
